FAERS Safety Report 20503374 (Version 2)
Quarter: 2024Q1

REPORT INFORMATION
  Report Type: Spontaneous
  Country: US (occurrence: US)
  Receive Date: 20220222
  Receipt Date: 20240110
  Transmission Date: 20240409
  Serious: No
  Sender: FDA-Public Use
  Company Number: US-NOVARTISTESTPH-NVSC2022US037702

PATIENT
  Sex: Female
  Weight: 91.7 kg

DRUGS (1)
  1. PROMACTA [Suspect]
     Active Substance: ELTROMBOPAG OLAMINE
     Indication: Immune thrombocytopenia
     Dosage: 50 MG, QD
     Route: 048
     Dates: start: 2015, end: 20220216

REACTIONS (3)
  - Product dose omission issue [Unknown]
  - Maternal exposure during pregnancy [Recovered/Resolved]
  - Anaemia [Unknown]
